FAERS Safety Report 6749755-1 (Version None)
Quarter: 2010Q2

REPORT INFORMATION
  Report Type: 
  Country: None (occurrence: None)
  Receive Date: 20100601
  Receipt Date: 20100528
  Transmission Date: 20101027
  Serious: Yes (Death, Life-Threatening, Hospitalization, Disabling, Other)
  Sender: FDA-Public Use
  Company Number: CN-SANOFI-AVENTIS-200913021EU

PATIENT
  Age: 80 Year
  Sex: Male
  Weight: 48 kg

DRUGS (15)
  1. ENOXAPARIN SODIUM [Suspect]
     Route: 058
     Dates: start: 20090522, end: 20090601
  2. INDAPAMIDE [Concomitant]
     Route: 048
     Dates: start: 20090216
  3. ESTAZOLAM [Concomitant]
     Route: 048
     Dates: start: 20090216
  4. SPIRONOLACTONE [Concomitant]
     Route: 048
     Dates: start: 20090514
  5. HERBAL PREPARATION [Concomitant]
     Route: 042
     Dates: start: 20090513, end: 20090528
  6. FAT EMULSIONS [Concomitant]
     Route: 042
     Dates: start: 20090513
  7. GLUCOSE [Concomitant]
     Route: 042
     Dates: start: 20090513
  8. VITAMIN B-12 [Concomitant]
     Route: 042
     Dates: start: 20090513
  9. VITAMIN B6 [Concomitant]
     Route: 042
     Dates: start: 20090513
  10. CREATINE PHOSPHATE [Concomitant]
     Route: 042
     Dates: start: 20090513
  11. INSULIN [Concomitant]
     Route: 042
     Dates: start: 20090513
  12. OTHER COMBINATIONS OF NUTRIENTS [Concomitant]
     Route: 048
     Dates: start: 20090513
  13. OMEPRAZOLE SODIUM [Concomitant]
     Route: 042
     Dates: start: 20090601
  14. THROMBIN LOCAL SOLUTION [Concomitant]
     Route: 048
     Dates: start: 20090601
  15. FUROSEMIDE [Concomitant]
     Route: 042
     Dates: start: 20090602

REACTIONS (3)
  - GASTRIC CANCER [None]
  - RENAL FAILURE [None]
  - UPPER GASTROINTESTINAL HAEMORRHAGE [None]
